FAERS Safety Report 8448496-2 (Version None)
Quarter: 2012Q2

REPORT INFORMATION
  Report Type: 
  Country: None (occurrence: None)
  Receive Date: 20120619
  Receipt Date: 20120608
  Transmission Date: 20120825
  Serious: Yes (Hospitalization, Other)
  Sender: FDA-Public Use
  Company Number: DE-BRISTOL-MYERS SQUIBB COMPANY-16540734

PATIENT
  Age: 58 Year
  Sex: Male
  Weight: 88 kg

DRUGS (1)
  1. IPILIMUMAB [Suspect]
     Indication: METASTATIC MALIGNANT MELANOMA
     Dosage: RECEIVED 2ND ADMINISTRATION (270 MG,IV) ON 18-NOV-2011.
     Route: 042
     Dates: start: 20111027

REACTIONS (2)
  - RHEUMATOID ARTHRITIS [None]
  - NEOPLASM MALIGNANT [None]
